FAERS Safety Report 15937280 (Version 2)
Quarter: 2019Q1

REPORT INFORMATION
  Report Type: Spontaneous
  Country: JP (occurrence: JP)
  Receive Date: 20190208
  Receipt Date: 20190226
  Transmission Date: 20190417
  Serious: Yes (Death, Hospitalization)
  Sender: FDA-Public Use
  Company Number: JP-CLINIGEN GROUP PLC/ CLINIGEN HEALTHCARE LTD-JP-CLGN-19-00071

PATIENT
  Age: 33 Year
  Sex: Male
  Weight: 64 kg

DRUGS (8)
  1. FOSCAVIR [Suspect]
     Active Substance: FOSCARNET SODIUM
     Indication: ENCEPHALITIS VIRAL
  2. GANCICLOVIR. [Suspect]
     Active Substance: GANCICLOVIR
     Indication: ENCEPHALITIS VIRAL
  3. FOSCAVIR [Suspect]
     Active Substance: FOSCARNET SODIUM
     Indication: HUMAN HERPESVIRUS 6 INFECTION
     Route: 042
     Dates: start: 20151117, end: 20151214
  4. GANCICLOVIR. [Suspect]
     Active Substance: GANCICLOVIR
     Indication: HUMAN HERPESVIRUS 6 INFECTION
     Dates: start: 20151117, end: 20151214
  5. CYTARABINE. [Concomitant]
     Active Substance: CYTARABINE
     Indication: ACUTE MYELOID LEUKAEMIA
  6. FOSCAVIR [Suspect]
     Active Substance: FOSCARNET SODIUM
     Indication: VIRAL MYELITIS
  7. GANCICLOVIR. [Suspect]
     Active Substance: GANCICLOVIR
     Indication: VIRAL MYELITIS
  8. CYTARABINE. [Concomitant]
     Active Substance: CYTARABINE
     Indication: LEUKAEMIA RECURRENT

REACTIONS (4)
  - Acute myeloid leukaemia [Fatal]
  - Off label use [Unknown]
  - Pyrexia [Recovered/Resolved]
  - Leukaemia recurrent [Fatal]

NARRATIVE: CASE EVENT DATE: 20151120
